FAERS Safety Report 6603144-9 (Version None)
Quarter: 2010Q1

REPORT INFORMATION
  Report Type: 
  Country: None (occurrence: None)
  Receive Date: 20100226
  Receipt Date: 20100215
  Transmission Date: 20100710
  Serious: Yes (Life-Threatening)
  Sender: FDA-Public Use
  Company Number: FR-PFIZER INC-2010019383

PATIENT
  Age: 85 Year
  Sex: Male

DRUGS (5)
  1. NEURONTIN [Suspect]
     Indication: CONVULSION
     Dosage: UNK
     Dates: start: 20091015
  2. RIVOTRIL [Suspect]
     Indication: CONVULSION
     Dosage: UNK
     Dates: start: 20091015
  3. ALDACTAZINE [Concomitant]
  4. GINKOR [Concomitant]
  5. METEOSPASMYL [Concomitant]

REACTIONS (2)
  - AGGRESSION [None]
  - SUICIDAL IDEATION [None]
